FAERS Safety Report 9165943 (Version 1)
Quarter: 2013Q1

REPORT INFORMATION
  Report Type: Spontaneous
  Country: BR (occurrence: BR)
  Receive Date: 20130315
  Receipt Date: 20130315
  Transmission Date: 20140127
  Serious: Yes (Hospitalization, Other)
  Sender: FDA-Public Use
  Company Number: BR-PFIZER INC-2013085702

PATIENT
  Age: 47 Year
  Sex: Female

DRUGS (10)
  1. LIPITOR [Suspect]
     Dosage: ONCE A DAY
  2. BENERVA [Concomitant]
     Dosage: UNK
  3. CONDROFLEX [Concomitant]
     Dosage: UNK
  4. DANILON [Concomitant]
     Dosage: UNK
  5. FLUXENE [Concomitant]
     Dosage: UNK
  6. KARSIL [Concomitant]
     Dosage: UNK
  7. OSCAL D [Concomitant]
     Dosage: UNK
  8. PANTOPRAZOL [Concomitant]
     Dosage: UNK
  9. TOPISON [Concomitant]
     Dosage: UNK
  10. VERUTEX [Concomitant]
     Dosage: UNK

REACTIONS (4)
  - Breast cancer [Unknown]
  - Cancer pain [Unknown]
  - Cardiac disorder [Unknown]
  - Fibromyalgia [Unknown]
